FAERS Safety Report 9731951 (Version 2)
Quarter: 2013Q4

REPORT INFORMATION
  Report Type: Spontaneous
  Country: DE (occurrence: DE)
  Receive Date: 20131205
  Receipt Date: 20131205
  Transmission Date: 20140711
  Serious: Yes (Other)
  Sender: FDA-Public Use
  Company Number: PHHY2013DE112160

PATIENT
  Sex: Female

DRUGS (4)
  1. LEPONEX [Suspect]
     Dosage: UNK
  2. XEPLION [Concomitant]
     Indication: SCHIZOAFFECTIVE DISORDER
     Dosage: 75 MG, EVERY FOUR WEEKS,
     Route: 030
  3. SEROQUEL [Concomitant]
     Indication: SCHIZOAFFECTIVE DISORDER
     Dosage: 50 MG, QD
     Route: 048
  4. TRIMIPRAMIN AL//TRIMIPRAMINE MALEATE [Concomitant]
     Indication: SCHIZOAFFECTIVE DISORDER
     Dosage: 50 MG, QD
     Route: 048

REACTIONS (1)
  - Lymphopenia [Unknown]
